FAERS Safety Report 20670975 (Version 1)
Quarter: 2022Q2

REPORT INFORMATION
  Report Type: Spontaneous
  Country: US (occurrence: US)
  Receive Date: 20220404
  Receipt Date: 20220404
  Transmission Date: 20220721
  Serious: No
  Sender: FDA-Public Use
  Company Number: US-PFIZER INC-2020449075

PATIENT
  Age: 74 Year
  Sex: Female
  Weight: 72.57 kg

DRUGS (1)
  1. IBRANCE [Suspect]
     Active Substance: PALBOCICLIB
     Indication: Breast cancer metastatic
     Dosage: 125 MG, CYCLIC [DAILY FOR 3 WEEKS AND THEN 7 DAYS OFF]
     Dates: start: 20170820

REACTIONS (2)
  - Fatigue [Unknown]
  - Product packaging difficult to open [Unknown]
